FAERS Safety Report 14417991 (Version 1)
Quarter: 2018Q1

REPORT INFORMATION
  Report Type: Spontaneous
  Country: US (occurrence: US)
  Receive Date: 20180122
  Receipt Date: 20180122
  Transmission Date: 20180509
  Serious: No
  Sender: FDA-Public Use
  Company Number: US-INTERCEPT-PMOCA2017001105

PATIENT

DRUGS (17)
  1. OCALIVA [Suspect]
     Active Substance: OBETICHOLIC ACID
     Indication: PRIMARY BILIARY CHOLANGITIS
     Dosage: 5 MG, QD
     Route: 048
     Dates: start: 20170719
  2. NASONEX [Concomitant]
     Active Substance: MOMETASONE FUROATE
     Dosage: 50 MCG, UNK
     Dates: start: 20170718
  3. POTASSIUM [Concomitant]
     Active Substance: POTASSIUM
     Dosage: 75 MG, UNK
     Dates: start: 20170718
  4. SUPER B 50 COMPLEX [Concomitant]
     Dosage: UNK
     Dates: start: 20170718
  5. FENOFIBRATE. [Concomitant]
     Active Substance: FENOFIBRATE
     Dosage: 67 MG, UNK
     Dates: start: 20170808
  6. VITAMIN D3 [Concomitant]
     Active Substance: CHOLECALCIFEROL
     Dosage: 1000 UNK, UNK
     Dates: start: 20170718
  7. VITAMIN E [Concomitant]
     Active Substance: .ALPHA.-TOCOPHEROL
     Dosage: 400 UNK, UNK
     Dates: start: 20170718
  8. CENTRUM SILVER [Concomitant]
     Active Substance: MINERALS\VITAMINS
     Dosage: UNK
     Dates: start: 20170718
  9. URSO FORTE [Concomitant]
     Active Substance: URSODIOL
     Dosage: 500 MG, UNK
     Dates: start: 20170718
  10. VIVELLE-DOT [Concomitant]
     Active Substance: ESTRADIOL
     Dosage: 0.037 MG, UNK
     Dates: start: 20170808
  11. ZYRTEC [Concomitant]
     Active Substance: CETIRIZINE HYDROCHLORIDE
     Dosage: 10 MG, UNK
     Dates: start: 20170808
  12. CITRACAL MAXIMUM [Concomitant]
     Active Substance: CALCIUM CITRATE\CHOLECALCIFEROL
     Dosage: UNK
     Dates: start: 20170718
  13. LASIX [Concomitant]
     Active Substance: FUROSEMIDE
     Dosage: 80 MG, UNK
     Dates: start: 20170718
  14. SOMA [Concomitant]
     Active Substance: CARISOPRODOL
     Dosage: 350 MG, UNK
     Dates: start: 20170718
  15. ULTRAM [Concomitant]
     Active Substance: TRAMADOL HYDROCHLORIDE
     Dosage: 50 MG, UNK
     Dates: start: 20170718
  16. BUDESONIDE. [Concomitant]
     Active Substance: BUDESONIDE
     Dosage: UNK
     Dates: start: 20170718
  17. NEXIUM [Concomitant]
     Active Substance: ESOMEPRAZOLE MAGNESIUM
     Dosage: 40 MG, UNK
     Dates: start: 20170718

REACTIONS (1)
  - Nephrolithiasis [Unknown]

NARRATIVE: CASE EVENT DATE: 20170930
